FAERS Safety Report 5341240-7 (Version None)
Quarter: 2007Q2

REPORT INFORMATION
  Report Type: 
  Country: None (occurrence: None)
  Receive Date: 20070404
  Receipt Date: 20060303
  Transmission Date: 20071010
  Serious: Yes (Other)
  Sender: FDA-Public Use
  Company Number: 2005074005

PATIENT
  Age: 9 Year
  Sex: Male

DRUGS (3)
  1. GEODON [Suspect]
     Indication: AGGRESSION
     Dosage: 60 MG (BID INTERVAL: EVERY DAY),
     Dates: start: 20041202, end: 20050422
  2. GEODON [Suspect]
     Indication: AGITATION
     Dosage: 60 MG (BID INTERVAL: EVERY DAY),
     Dates: start: 20041202, end: 20050422
  3. CLONIDINE [Concomitant]

REACTIONS (1)
  - PRIAPISM [None]
